FAERS Safety Report 25423956 (Version 1)
Quarter: 2025Q2

REPORT INFORMATION
  Report Type: Spontaneous
  Country: US (occurrence: None)
  Receive Date: 20250610
  Receipt Date: 20250610
  Transmission Date: 20250716
  Serious: Yes (Disabling)
  Sender: FDA-CTU
  Company Number: None

PATIENT
  Age: 41 Year
  Sex: Female
  Weight: 74.25 kg

DRUGS (1)
  1. RECLAST [Suspect]
     Active Substance: ZOLEDRONIC ACID
     Indication: Osteopenia
     Route: 042
     Dates: start: 20250521, end: 20250521

REACTIONS (11)
  - Influenza like illness [None]
  - Myalgia [None]
  - Bone pain [None]
  - Pyrexia [None]
  - Tachycardia [None]
  - Mobility decreased [None]
  - Peripheral sensory neuropathy [None]
  - Joint stiffness [None]
  - Fatigue [None]
  - Asthenia [None]
  - Abdominal discomfort [None]

NARRATIVE: CASE EVENT DATE: 20250522
